FAERS Safety Report 20559212 (Version 1)
Quarter: 2022Q1

REPORT INFORMATION
  Report Type: Spontaneous
  Country: US (occurrence: None)
  Receive Date: 20220304
  Receipt Date: 20220304
  Transmission Date: 20220424
  Serious: Yes (Hospitalization)
  Sender: FDA-Public Use
  Company Number: None

PATIENT
  Age: 56 Year
  Sex: Female

DRUGS (2)
  1. ENBREL [Suspect]
     Active Substance: ETANERCEPT
     Indication: Sjogren^s syndrome
     Dosage: 50MG ONCE A WEEK SUB-Q?
     Route: 058
     Dates: start: 20201222
  2. ENBREL [Suspect]
     Active Substance: ETANERCEPT
     Indication: Connective tissue disorder

REACTIONS (1)
  - Cardiac output decreased [None]

NARRATIVE: CASE EVENT DATE: 20220215
